FAERS Safety Report 5295509-5 (Version None)
Quarter: 2007Q2

REPORT INFORMATION
  Report Type: 
  Country: None (occurrence: None)
  Receive Date: 20070406
  Receipt Date: 20070329
  Transmission Date: 20071010
  Serious: Yes (Other)
  Sender: FDA-Public Use
  Company Number: 2007SP004684

PATIENT
  Sex: Female

DRUGS (3)
  1. NOXAFIL [Suspect]
     Indication: RESPIRATORY TRACT INFECTION FUNGAL
     Dosage: 400 MG; BID;
     Dates: start: 20061101
  2. PREDNISONE TAB [Concomitant]
  3. CICLOPHOSPHAMIDE [Concomitant]

REACTIONS (2)
  - CONDITION AGGRAVATED [None]
  - RESPIRATORY TRACT INFECTION FUNGAL [None]
